FAERS Safety Report 6489960-5 (Version None)
Quarter: 2009Q4

REPORT INFORMATION
  Report Type: 
  Country: None (occurrence: None)
  Receive Date: 20091211
  Receipt Date: 20091130
  Transmission Date: 20100525
  Serious: Yes (Hospitalization, Other)
  Sender: FDA-Public Use
  Company Number: PHHY2009RS49678

PATIENT
  Age: 35 Year
  Sex: Male

DRUGS (2)
  1. LEPONEX [Suspect]
     Indication: SCHIZOPHRENIA
     Dosage: 75 MG/DAY
     Route: 048
     Dates: start: 20090501
  2. VALPROIC ACID [Concomitant]
     Dosage: UNK

REACTIONS (3)
  - DYSPHAGIA [None]
  - PHARYNGEAL DISORDER [None]
  - SALIVARY HYPERSECRETION [None]
